FAERS Safety Report 8968783 (Version 1)
Quarter: 2012Q4

REPORT INFORMATION
  Report Type: 
  Country: US (occurrence: US)
  Receive Date: 20121218
  Receipt Date: 20121218
  Transmission Date: 20130627
  Serious: No
  Sender: FDA-Public Use
  Company Number: US-BRISTOL-MYERS SQUIBB COMPANY-16353492

PATIENT
  Age: 73 Year
  Sex: Female
  Weight: 54 kg

DRUGS (1)
  1. ABILIFY [Suspect]
     Dosage: Therapy start:May/June11.Prescription infor:Abilify 10mg,30tab:22Dec11,Abilify 5mg,30tab,31Dec11
     Dates: start: 2011

REACTIONS (1)
  - Fall [Unknown]
